FAERS Safety Report 18173716 (Version 4)
Quarter: 2020Q4

REPORT INFORMATION
  Report Type: Report from Study
  Country: None (occurrence: US)
  Receive Date: 20200820
  Receipt Date: 20201028
  Transmission Date: 20210113
  Serious: Yes (Hospitalization)
  Sender: FDA-Public Use
  Company Number: US-ABBVIE-20K-163-3531273-00

PATIENT
  Age: 60 Year
  Sex: Male
  Weight: 124.4 kg

DRUGS (1)
  1. SKYRIZI [Suspect]
     Active Substance: RISANKIZUMAB-RZAA
     Indication: PSORIASIS
     Route: 058
     Dates: start: 202006

REACTIONS (9)
  - Blood cholesterol increased [Unknown]
  - Carbon dioxide increased [Recovered/Resolved]
  - Hallucination [Recovered/Resolved]
  - Cardiac disorder [Unknown]
  - Tremor [Recovered/Resolved]
  - Wound infection [Recovering/Resolving]
  - Wound complication [Recovering/Resolving]
  - Abscess limb [Recovered/Resolved]
  - Groin abscess [Recovering/Resolving]

NARRATIVE: CASE EVENT DATE: 2020
